FAERS Safety Report 11230454 (Version 3)
Quarter: 2015Q3

REPORT INFORMATION
  Report Type: Spontaneous
  Country: JP (occurrence: JP)
  Receive Date: 20150701
  Receipt Date: 20150720
  Transmission Date: 20151125
  Serious: Yes (Death, Life-Threatening, Hospitalization)
  Sender: FDA-Public Use
  Company Number: JP-ASTRAZENECA-2015SE63314

PATIENT
  Age: 25637 Day
  Sex: Male

DRUGS (17)
  1. DAPAGLIFLOZIN [Suspect]
     Active Substance: DAPAGLIFLOZIN
     Indication: TYPE 2 DIABETES MELLITUS
     Dosage: OPEN LABEL PHASE
     Route: 048
     Dates: start: 20141212, end: 20150608
  2. NOVORAPID [Concomitant]
     Active Substance: INSULIN ASPART
     Dosage: SC AND IM 22 PRANDIAL
     Route: 051
     Dates: start: 20130206, end: 20150608
  3. OMEPRAZOLE. [Concomitant]
     Active Substance: OMEPRAZOLE
     Indication: GASTRIC ULCER HAEMORRHAGE
     Route: 042
     Dates: start: 20150611, end: 20150707
  4. HEPARIN SODIUM. [Concomitant]
     Active Substance: HEPARIN SODIUM
     Indication: ANTICOAGULANT THERAPY
     Route: 042
     Dates: start: 20150612, end: 20150619
  5. DAPAGLIFLOZIN [Suspect]
     Active Substance: DAPAGLIFLOZIN
     Indication: TYPE 2 DIABETES MELLITUS
     Dosage: BLINDED PHASE
     Route: 048
     Dates: start: 20140822, end: 20141211
  6. NEVANAC [Concomitant]
     Active Substance: NEPAFENAC
     Indication: INFLAMMATION
     Dosage: 6 DROPS
     Route: 047
     Dates: start: 20130204, end: 20150608
  7. WARFARIN [Suspect]
     Active Substance: WARFARIN
     Indication: CEREBRAL INFARCTION
     Route: 048
     Dates: end: 20140819
  8. WARFARIN [Suspect]
     Active Substance: WARFARIN
     Indication: CEREBRAL INFARCTION
     Route: 048
     Dates: start: 20140820, end: 20150608
  9. FEBURIC [Concomitant]
     Active Substance: FEBUXOSTAT
     Indication: GOUT
     Route: 048
  10. WARFARIN [Suspect]
     Active Substance: WARFARIN
     Indication: CEREBRAL INFARCTION
     Route: 048
     Dates: start: 20150619, end: 20150623
  11. NEUROTOROPIN [Concomitant]
     Indication: CEREBRAL INFARCTION
     Route: 048
  12. METHYCOBAL [Concomitant]
     Active Substance: METHYLCOBALAMIN
     Indication: DIABETIC NEUROPATHY
     Route: 048
  13. MOHRUS [Concomitant]
     Active Substance: KETOPROFEN
     Indication: MUSCLE FATIGUE
     Dosage: TAPE L 40 MG
     Route: 003
     Dates: start: 20150511, end: 20150608
  14. PRAVASTATIN [Concomitant]
     Active Substance: PRAVASTATIN\PRAVASTATIN SODIUM
     Indication: DYSLIPIDAEMIA
     Route: 048
  15. EURASON [Concomitant]
     Active Substance: DEXAMETHASONE
     Indication: DYSLIPIDAEMIA
     Route: 048
     Dates: start: 20150108
  16. LAMISIL [Concomitant]
     Active Substance: TERBINAFINE HYDROCHLORIDE
     Indication: ONYCHOMYCOSIS
     Route: 003
     Dates: start: 20140612
  17. CEFTRIAXONE SODIUM. [Concomitant]
     Active Substance: CEFTRIAXONE SODIUM
     Indication: INFECTION PROPHYLAXIS
     Route: 042
     Dates: start: 20150622, end: 20150626

REACTIONS (2)
  - Cerebral infarction [Fatal]
  - Gastric ulcer haemorrhage [Recovered/Resolved with Sequelae]

NARRATIVE: CASE EVENT DATE: 20150609
